FAERS Safety Report 11745830 (Version 1)
Quarter: 2015Q4

REPORT INFORMATION
  Report Type: Spontaneous
  Country: TW (occurrence: TW)
  Receive Date: 20151117
  Receipt Date: 20151117
  Transmission Date: 20160304
  Serious: Yes (Death)
  Sender: FDA-Public Use
  Company Number: TW-CELGENE-TWN-2015111481

PATIENT
  Age: 88 Year
  Sex: Male

DRUGS (1)
  1. REVLIMID [Suspect]
     Active Substance: LENALIDOMIDE
     Indication: PLASMA CELL MYELOMA
     Dosage: 25 MILLIGRAM
     Route: 048
     Dates: start: 20140915, end: 20150501

REACTIONS (4)
  - Thrombocytopenia [Fatal]
  - Renal impairment [Fatal]
  - Normochromic normocytic anaemia [Fatal]
  - Pyrexia [Fatal]

NARRATIVE: CASE EVENT DATE: 20150622
